FAERS Safety Report 9530184 (Version 3)
Quarter: 2013Q4

REPORT INFORMATION
  Report Type: Spontaneous
  Country: DE (occurrence: DE)
  Receive Date: 20130917
  Receipt Date: 20131009
  Transmission Date: 20140711
  Serious: Yes (Other)
  Sender: FDA-Public Use
  Company Number: DE-PFIZER INC-2013263360

PATIENT
  Age: 73 Year
  Sex: Male

DRUGS (4)
  1. REVATIO [Suspect]
     Dosage: 20 MG, UNK
  2. FALITHROM [Interacting]
  3. JENASPIRON [Concomitant]
  4. TOREM [Concomitant]

REACTIONS (2)
  - International normalised ratio increased [Unknown]
  - Drug interaction [Unknown]
